FAERS Safety Report 25433457 (Version 1)
Quarter: 2025Q2

REPORT INFORMATION
  Report Type: Spontaneous
  Country: US (occurrence: US)
  Receive Date: 20250613
  Receipt Date: 20250613
  Transmission Date: 20250717
  Serious: No
  Sender: ALKERMES
  Company Number: US-ALKERMES INC.-ALK-2025-001534

PATIENT
  Age: 22 Year
  Sex: Female
  Weight: 50 kg

DRUGS (2)
  1. ARISTADA [Suspect]
     Active Substance: ARIPIPRAZOLE LAUROXIL
     Indication: Psychotic disorder
     Route: 030
     Dates: start: 20250602
  2. ABILIFY [Concomitant]
     Active Substance: ARIPIPRAZOLE
     Indication: Psychotic disorder
     Route: 065

REACTIONS (2)
  - Product administered at inappropriate site [Recovered/Resolved]
  - Off label use [Unknown]

NARRATIVE: CASE EVENT DATE: 20250602
